FAERS Safety Report 5198718-9 (Version None)
Quarter: 2007Q1

REPORT INFORMATION
  Report Type: 
  Country: None (occurrence: None)
  Receive Date: 20070104
  Receipt Date: 20070102
  Transmission Date: 20070707
  Serious: Yes (Hospitalization, Other)
  Sender: FDA-Public Use
  Company Number: US-GLAXOSMITHKLINE-A0630932A

PATIENT
  Age: 79 Year
  Sex: Male

DRUGS (4)
  1. CEFAZOLIN [Suspect]
     Dosage: 2G THREE TIMES PER DAY
     Route: 042
     Dates: start: 20061205
  2. OLANZAPINE [Concomitant]
     Dosage: 7.5MG PER DAY
     Route: 048
  3. PAROXETINE HCL [Concomitant]
     Dosage: 10MG AT NIGHT
     Route: 048
  4. POTASSIUM CHLORIDE [Concomitant]
     Dosage: 10MEQ PER DAY
     Route: 048

REACTIONS (4)
  - BLISTER [None]
  - DRUG ADMINISTRATION ERROR [None]
  - EXTRAVASATION [None]
  - INFUSION SITE REACTION [None]
